FAERS Safety Report 8959175 (Version 1)
Quarter: 2012Q4

REPORT INFORMATION
  Report Type: 
  Country: US (occurrence: US)
  Receive Date: 20121212
  Receipt Date: 20121212
  Transmission Date: 20130627
  Serious: No
  Sender: FDA-Public Use
  Company Number: US-009507513-1212USA003757

PATIENT
  Age: 50 Year
  Sex: Female

DRUGS (2)
  1. SINGULAIR [Suspect]
     Dosage: UNK
     Dates: end: 20121107
  2. ASMANEX TWISTHALER [Concomitant]
     Indication: ASTHMA
     Dosage: 220 Microgram, bid, once in morning and once in night
     Dates: start: 20111207

REACTIONS (1)
  - Drug ineffective [Unknown]
